FAERS Safety Report 10342783 (Version 3)
Quarter: 2015Q2

REPORT INFORMATION
  Report Type: Spontaneous
  Country: US (occurrence: US)
  Receive Date: 20140725
  Receipt Date: 20150417
  Transmission Date: 20150821
  Serious: Yes (Other)
  Sender: FDA-Public Use
  Company Number: US-PFIZER INC-2014133765

PATIENT
  Age: 60 Year
  Sex: Female
  Weight: 67.12 kg

DRUGS (2)
  1. LYRICA [Suspect]
     Active Substance: PREGABALIN
     Indication: DIABETIC NEUROPATHY
     Dosage: 100 MG, 3X/DAY
  2. LYRICA [Suspect]
     Active Substance: PREGABALIN
     Indication: BACK PAIN

REACTIONS (6)
  - Muscular weakness [Unknown]
  - Activities of daily living impaired [Unknown]
  - Spinal column injury [Unknown]
  - Gait disturbance [Unknown]
  - Back disorder [Unknown]
  - Road traffic accident [Unknown]
